FAERS Safety Report 6091427-3 (Version None)
Quarter: 2009Q1

REPORT INFORMATION
  Report Type: 
  Country: None (occurrence: None)
  Receive Date: 20090219
  Receipt Date: 20090219
  Transmission Date: 20090719
  Serious: No
  Sender: FDA-Public Use
  Company Number: None

PATIENT
  Age: 85 Year
  Sex: Male
  Weight: 79.3795 kg

DRUGS (14)
  1. ALENDRONATE SODIUM [Suspect]
     Dosage: 70MG PO
     Route: 048
     Dates: start: 20080506, end: 20080507
  2. CALCIUM CARBONATE [Concomitant]
  3. DITALOPRAM [Concomitant]
  4. DEPAKOTE ER [Concomitant]
  5. DONEPEZIL HCL [Concomitant]
  6. VIT D [Concomitant]
  7. FOLIC ACID [Concomitant]
  8. GUAIFENESIN [Concomitant]
  9. LORATADINE [Concomitant]
  10. MEMANTINE HCL [Concomitant]
  11. RANITIDINE [Concomitant]
  12. SIMVASTATIN [Concomitant]
  13. TRAZODONE HCL [Concomitant]
  14. DIGOXIN [Concomitant]

REACTIONS (1)
  - ATRIAL FIBRILLATION [None]
